FAERS Safety Report 17394814 (Version 1)
Quarter: 2020Q1

REPORT INFORMATION
  Report Type: Spontaneous
  Country: DE (occurrence: DE)
  Receive Date: 20200210
  Receipt Date: 20200210
  Transmission Date: 20200409
  Serious: Yes (Other)
  Sender: FDA-Public Use
  Company Number: DE-AUROBINDO-AUR-APL-2020-006019

PATIENT
  Sex: Female

DRUGS (4)
  1. ASENAPINE MALEATE [Suspect]
     Active Substance: ASENAPINE MALEATE
     Indication: MANIA
     Dosage: 20 MILLIGRAM, ONCE A DAY, (10 MG IN THE MORNING AND 10 MG IN THE AFTERNOON)
     Route: 065
  2. ESCITALOPRAM FILM-COATED TABLETS [Suspect]
     Active Substance: ESCITALOPRAM OXALATE
     Indication: DEPRESSION
     Dosage: 5 MILLIGRAM
     Route: 065
  3. NOVALGIN [Concomitant]
     Indication: BACK PAIN
     Dosage: UNK
     Route: 065
  4. QUILONUM [Concomitant]
     Active Substance: LITHIUM
     Indication: PRODUCT USED FOR UNKNOWN INDICATION
     Dosage: 50 MILLIGRAM, TWO TIMES A DAY(2 X 50 MG)
     Route: 065

REACTIONS (6)
  - Anaphylactic shock [Recovered/Resolved]
  - Back pain [Unknown]
  - Influenza [Unknown]
  - Feeling abnormal [Unknown]
  - Depressed mood [Unknown]
  - Depression [Unknown]
